FAERS Safety Report 5354933-2 (Version None)
Quarter: 2007Q2

REPORT INFORMATION
  Report Type: 
  Country: None (occurrence: None)
  Receive Date: 20070516
  Receipt Date: 20060916
  Transmission Date: 20071010
  Serious: Yes (Other)
  Sender: FDA-Public Use
  Company Number: 2006105509

PATIENT
  Age: 25 Year
  Sex: Female

DRUGS (1)
  1. DEPO-PROVERA [Suspect]
     Indication: DRUG USE FOR UNKNOWN INDICATION
     Dosage: SEE IMAGE
     Route: 030
     Dates: start: 20060401, end: 20060401

REACTIONS (5)
  - ANGIOEDEMA [None]
  - ARTHRALGIA [None]
  - RASH [None]
  - SWELLING [None]
  - URTICARIA [None]
